FAERS Safety Report 13246573 (Version 1)
Quarter: 2017Q1

REPORT INFORMATION
  Report Type: Spontaneous
  Country: US (occurrence: US)
  Receive Date: 20170217
  Receipt Date: 20170217
  Transmission Date: 20170428
  Serious: No
  Sender: FDA-Public Use
  Company Number: GXBR2016US002762

PATIENT
  Sex: Female

DRUGS (1)
  1. ALPRAZOLAM TABLETS USP [Suspect]
     Active Substance: ALPRAZOLAM
     Indication: PRODUCT USED FOR UNKNOWN INDICATION
     Dosage: UNK DF, UNK
     Route: 065

REACTIONS (9)
  - Tachycardia [Unknown]
  - Circadian rhythm sleep disorder [Unknown]
  - Constipation [Unknown]
  - Dysuria [Unknown]
  - Somnolence [Unknown]
  - Irritability [Unknown]
  - Migraine [Unknown]
  - Hangover [Unknown]
  - Photophobia [Unknown]
